FAERS Safety Report 4595380-0 (Version None)
Quarter: 2005Q1

REPORT INFORMATION
  Report Type: 
  Country: None (occurrence: None)
  Receive Date: 20050224
  Receipt Date: 20050202
  Transmission Date: 20050727
  Serious: Yes (Hospitalization, Other)
  Sender: FDA-Public Use
  Company Number: USA040670201

PATIENT
  Age: 76 Year
  Sex: Female
  Weight: 49 kg

DRUGS (11)
  1. FORTEO [Suspect]
     Indication: OSTEOPOROSIS
     Dosage: 20 UG/1 DAY
     Dates: start: 20020101
  2. EVISTA [Suspect]
     Indication: OSTEOPOROSIS
     Dates: start: 20020401, end: 20020501
  3. ACTOS [Concomitant]
  4. AGGRENOX [Concomitant]
  5. PLAQUENIL [Concomitant]
  6. PREDNISONE [Concomitant]
  7. INDERAL [Concomitant]
  8. MULTI-VITAMIN [Concomitant]
  9. VITAMIN B-12 [Concomitant]
  10. CALCIUM WITH VITAMIN D [Concomitant]
  11. SYNTHROID [Concomitant]

REACTIONS (32)
  - ABDOMINAL PAIN UPPER [None]
  - ASTHENIA [None]
  - BLOOD ALKALINE PHOSPHATASE INCREASED [None]
  - BLOOD GLUCOSE INCREASED [None]
  - BLOOD UREA INCREASED [None]
  - BODY TEMPERATURE INCREASED [None]
  - CHAPPED LIPS [None]
  - COGNITIVE DISORDER [None]
  - CONVULSION [None]
  - CYST [None]
  - DIZZINESS [None]
  - DRY MOUTH [None]
  - ENCEPHALITIS [None]
  - ENCEPHALOPATHY [None]
  - FATIGUE [None]
  - HEPATIC ENCEPHALOPATHY [None]
  - HYPERREFLEXIA [None]
  - INSOMNIA [None]
  - LIVER DISORDER [None]
  - MEAN CELL HAEMOGLOBIN INCREASED [None]
  - MEAN CELL VOLUME INCREASED [None]
  - MENTAL STATUS CHANGES [None]
  - MOBILITY DECREASED [None]
  - MUSCLE RIGIDITY [None]
  - MYOCLONUS [None]
  - PERITONITIS BACTERIAL [None]
  - PHARMACEUTICAL PRODUCT COMPLAINT [None]
  - PLATELET COUNT DECREASED [None]
  - RASH GENERALISED [None]
  - SOMNOLENCE [None]
  - THROMBOSIS [None]
  - TONGUE HAEMATOMA [None]
